FAERS Safety Report 17797848 (Version 1)
Quarter: 2020Q2

REPORT INFORMATION
  Report Type: Spontaneous
  Country: US (occurrence: US)
  Receive Date: 20200516
  Receipt Date: 20200516
  Transmission Date: 20200714
  Serious: No
  Sender: FDA-Public Use
  Company Number: None

PATIENT
  Age: 62 Year
  Sex: Female
  Weight: 67.5 kg

DRUGS (2)
  1. XIFAXAN [Suspect]
     Active Substance: RIFAXIMIN
     Indication: SALMONELLOSIS
     Dosage: ?          QUANTITY:1 TABLET(S);?
     Route: 048
  2. LEVOTHYROXN [Concomitant]

REACTIONS (4)
  - Frequent bowel movements [None]
  - Skin odour abnormal [None]
  - Anal incontinence [None]
  - Abnormal faeces [None]

NARRATIVE: CASE EVENT DATE: 20200403
